FAERS Safety Report 20033426 (Version 3)
Quarter: 2021Q4

REPORT INFORMATION
  Report Type: Spontaneous
  Country: DE (occurrence: DE)
  Receive Date: 20211104
  Receipt Date: 20211119
  Transmission Date: 20220303
  Serious: Yes (Death, Hospitalization, Other)
  Sender: FDA-Public Use
  Company Number: DE-CELGENE-DEU-20211100206

PATIENT
  Age: 84 Year
  Sex: Male
  Weight: 69.8 kg

DRUGS (37)
  1. LENALIDOMIDE [Suspect]
     Active Substance: LENALIDOMIDE
     Indication: Plasma cell myeloma
     Dosage: 25 MILLIGRAM
     Route: 048
     Dates: start: 20210407, end: 202105
  2. DEXAMETHASONE [Suspect]
     Active Substance: DEXAMETHASONE
     Indication: Plasma cell myeloma
     Dosage: 20 MILLIGRAM
     Route: 048
     Dates: start: 20210407, end: 202105
  3. DARATUMUMAB [Concomitant]
     Active Substance: DARATUMUMAB
     Indication: Plasma cell myeloma
     Route: 065
     Dates: start: 20160407, end: 2021
  4. ASPIRIN [Concomitant]
     Active Substance: ASPIRIN
     Indication: Product used for unknown indication
     Dosage: 100 MILLIGRAM
     Route: 048
     Dates: start: 20160407, end: 20180204
  5. BIMATOPROST [Concomitant]
     Active Substance: BIMATOPROST
     Indication: Cataract operation
     Route: 065
     Dates: start: 2018
  6. Gentamicin Dexa [Concomitant]
     Indication: Eye infection viral
     Route: 065
     Dates: start: 2018
  7. COSOPT [Concomitant]
     Active Substance: DORZOLAMIDE HYDROCHLORIDE\TIMOLOL MALEATE
     Indication: Cataract operation
     Route: 065
     Dates: start: 2018
  8. TIMOLOL MALEATE [Concomitant]
     Active Substance: TIMOLOL MALEATE
     Indication: Cataract operation
     Route: 065
  9. POLYETHYLENE GLYCOLS [Concomitant]
     Active Substance: POLYETHYLENE GLYCOLS
     Indication: Constipation
     Dosage: 2 AS DIRECTED
     Route: 065
     Dates: start: 20160310, end: 20160414
  10. FOLIC ACID [Concomitant]
     Active Substance: FOLIC ACID
     Indication: Folate deficiency
     Dosage: 5 MILLIGRAM
     Route: 065
     Dates: start: 20200322, end: 20200702
  11. FOLIC ACID [Concomitant]
     Active Substance: FOLIC ACID
     Dosage: .3571 MILLIGRAM
     Route: 065
     Dates: start: 20200702
  12. MELPERONE [Concomitant]
     Active Substance: MELPERONE
     Indication: Insomnia
     Dosage: 5 MILLIGRAM
     Route: 065
     Dates: start: 20180204, end: 20180204
  13. PAMIDRONIC ACID [Concomitant]
     Active Substance: PAMIDRONIC ACID
     Indication: Osteolysis
     Dosage: 1 MILLIGRAM
     Route: 065
     Dates: start: 20160512
  14. POTASSIUM CITRATE [Concomitant]
     Active Substance: POTASSIUM CITRATE
     Indication: Hypokalaemia
     Dosage: 2 AS DIRECTED
     Route: 065
     Dates: start: 20180205, end: 20180206
  15. POTASSIUM CITRATE [Concomitant]
     Active Substance: POTASSIUM CITRATE
     Dosage: 2 AS DIRECTED
     Route: 065
     Dates: start: 20180219, end: 20180219
  16. PANTOPRAZOLE [Concomitant]
     Active Substance: PANTOPRAZOLE
     Indication: Prophylaxis
     Dosage: 40 MILLIGRAM
     Route: 065
     Dates: start: 20180204, end: 20180204
  17. PANTOPRAZOLE [Concomitant]
     Active Substance: PANTOPRAZOLE
     Dosage: 40 MILLIGRAM
     Route: 048
     Dates: start: 20180205, end: 20180219
  18. ENOXAPARIN SODIUM [Concomitant]
     Active Substance: ENOXAPARIN SODIUM
     Indication: Thrombosis prophylaxis
     Route: 065
  19. PHYTONADIONE [Concomitant]
     Active Substance: PHYTONADIONE
     Indication: Vitamin K deficiency
     Dosage: 20 DROPS
     Route: 065
     Dates: start: 20180205, end: 20180205
  20. PHYTONADIONE [Concomitant]
     Active Substance: PHYTONADIONE
     Dosage: 10 DROPS
     Route: 065
     Dates: start: 20180206, end: 20180213
  21. CHOLECALCIFEROL [Concomitant]
     Active Substance: CHOLECALCIFEROL
     Indication: General physical health deterioration
     Dosage: 1000 IU (INTERNATIONAL UNIT)
     Route: 065
     Dates: start: 20180204, end: 20180219
  22. CHOLECALCIFEROL [Concomitant]
     Active Substance: CHOLECALCIFEROL
     Dosage: 2857.14 IU (INTERNATIONAL UNIT)
     Route: 065
     Dates: start: 20180220, end: 20200605
  23. ACETAZOLAMIDE [Concomitant]
     Active Substance: ACETAZOLAMIDE
     Indication: Product used for unknown indication
     Dosage: 250 MILLIGRAM
     Route: 065
     Dates: start: 20180216, end: 20180216
  24. ACETAZOLAMIDE [Concomitant]
     Active Substance: ACETAZOLAMIDE
     Dosage: 500 MILLIGRAM
     Route: 065
     Dates: start: 20180217, end: 20180217
  25. BRIMONIDINE [Concomitant]
     Active Substance: BRIMONIDINE TARTRATE
     Indication: Folate deficiency
     Dosage: 1 DROPS
     Route: 065
     Dates: start: 20180216, end: 20180216
  26. BRIMONIDINE [Concomitant]
     Active Substance: BRIMONIDINE TARTRATE
     Dosage: 2 DROPS
     Route: 065
     Dates: start: 20180217, end: 20180217
  27. BRIMONIDINE [Concomitant]
     Active Substance: BRIMONIDINE TARTRATE
     Dosage: 2 DOSAGE FORMS
     Route: 065
     Dates: start: 2018
  28. JONOSTERIL [Concomitant]
     Indication: Product used for unknown indication
     Dosage: 500 MILLIGRAM
     Route: 041
     Dates: start: 20210503, end: 20210503
  29. MAGNESIUM ACETATE TETRAHYDRATE [Concomitant]
     Active Substance: MAGNESIUM ACETATE TETRAHYDRATE
     Indication: Product used for unknown indication
     Route: 065
  30. RINGERS SOLUTION [Concomitant]
     Active Substance: CALCIUM CHLORIDE\POTASSIUM CHLORIDE\SODIUM CHLORIDE
     Indication: Product used for unknown indication
     Route: 065
     Dates: start: 20180214, end: 20180219
  31. CITALOPRAM [Concomitant]
     Active Substance: CITALOPRAM HYDROBROMIDE
     Indication: Product used for unknown indication
     Dosage: 10 MILLIGRAM
     Route: 048
     Dates: start: 20180404
  32. DORZOLAMIDE [Concomitant]
     Active Substance: DORZOLAMIDE
     Indication: Eye infection viral
     Dosage: 1 DROPS
     Route: 065
     Dates: start: 20180216, end: 20180216
  33. DORZOLAMIDE [Concomitant]
     Active Substance: DORZOLAMIDE
     Dosage: 2 DROPS
     Route: 065
     Dates: start: 20180217, end: 20180217
  34. FERRIC CARBOXYMALTOSE [Concomitant]
     Active Substance: FERRIC CARBOXYMALTOSE
     Indication: Product used for unknown indication
     Route: 041
     Dates: start: 20201216, end: 20201216
  35. METAMIZOLE [Concomitant]
     Active Substance: METAMIZOLE
     Indication: Product used for unknown indication
     Dosage: 30 DROPS
     Route: 065
     Dates: start: 20160311
  36. METAMIZOLE [Concomitant]
     Active Substance: METAMIZOLE
     Dosage: 40 DROPS
     Route: 065
     Dates: start: 20180206, end: 20180207
  37. PIPERACILLIN AND TAZOBACTAM [Concomitant]
     Active Substance: PIPERACILLIN SODIUM\TAZOBACTAM SODIUM
     Indication: Product used for unknown indication
     Dosage: 9 MILLIGRAM
     Route: 065
     Dates: start: 20160204

REACTIONS (1)
  - Colon cancer [Fatal]

NARRATIVE: CASE EVENT DATE: 20210526
